FAERS Safety Report 6690390-1 (Version None)
Quarter: 2010Q2

REPORT INFORMATION
  Report Type: 
  Country: None (occurrence: None)
  Receive Date: 20100421
  Receipt Date: 20100420
  Transmission Date: 20101027
  Serious: Yes (Life-Threatening, Hospitalization)
  Sender: FDA-Public Use
  Company Number: GXKR2010DE04393

PATIENT
  Age: 17 Year
  Sex: Male
  Weight: 60 kg

DRUGS (3)
  1. OMEPRAZOL (NGX) [Suspect]
     Dosage: 40 MG, QD
     Route: 048
     Dates: start: 20100204, end: 20100323
  2. PREDNISOLONE [Suspect]
     Indication: PYREXIA
     Dosage: 40 MG, QD
     Route: 048
     Dates: start: 20100317, end: 20100324
  3. PREDNISOLONE [Suspect]
     Dosage: 80 MG, QD
     Route: 048
     Dates: start: 20100204, end: 20100317

REACTIONS (1)
  - TOXIC EPIDERMAL NECROLYSIS [None]
